FAERS Safety Report 9815950 (Version 1)
Quarter: 2014Q1

REPORT INFORMATION
  Report Type: Spontaneous
  Country: US (occurrence: US)
  Receive Date: 20140114
  Receipt Date: 20140114
  Transmission Date: 20141002
  Serious: Yes (Death, Hospitalization, Other)
  Sender: FDA-Public Use
  Company Number: US-MERCK-1401USA003994

PATIENT
  Age: 66 Year
  Sex: Female

DRUGS (17)
  1. JANUVIA [Suspect]
     Indication: TYPE 2 DIABETES MELLITUS
     Dosage: 100 MG, QD
     Route: 048
     Dates: start: 200901
  2. METFORMIN [Concomitant]
     Dosage: UNK, BID
  3. NOVOLOG [Concomitant]
     Dosage: ON A SLIDING SCALE AND TAKEN WITH MEALS
  4. LANTUS [Concomitant]
     Dosage: UNK, QD
  5. METOPROLOL [Concomitant]
     Dosage: UNK, QD
  6. PRINIVIL [Concomitant]
     Dosage: UNK, QD
     Route: 048
  7. GEMFIBROZIL [Concomitant]
     Dosage: UNK, BID
  8. PRAVASTATIN SODIUM [Concomitant]
     Dosage: TAKEN HFS
  9. REGLAN [Concomitant]
     Dosage: UNK, TID
  10. PRADAXA [Concomitant]
     Dosage: UNK, BID
  11. LASIX (FUROSEMIDE SODIUM) [Concomitant]
     Dosage: UNK, QOD
  12. CYANOCOBALAMIN [Concomitant]
     Dosage: TAKEN AT DINNER
  13. NIACIN [Concomitant]
     Dosage: UNK, BID
  14. ALLOPURINOL [Concomitant]
     Dosage: UNK, QD
  15. GASTROINTESTINAL PREPARATIONS (UNSPECIFIED) [Concomitant]
     Dosage: UNK, QD
  16. ZANTAC [Concomitant]
     Dosage: UNK, QD
  17. IMDUR [Concomitant]
     Dosage: UNK, QD
     Route: 048

REACTIONS (1)
  - Cerebrovascular accident [Fatal]
